FAERS Safety Report 7349641-2 (Version None)
Quarter: 2011Q1

REPORT INFORMATION
  Report Type: 
  Country: None (occurrence: None)
  Receive Date: 20110314
  Receipt Date: 20100702
  Transmission Date: 20110831
  Serious: No
  Sender: FDA-Public Use
  Company Number: A0868416A

PATIENT
  Age: 64 Year
  Sex: Female

DRUGS (11)
  1. AUGMENTIN '125' [Suspect]
     Route: 065
  2. GLIPIZIDE [Suspect]
     Dates: end: 20100601
  3. LEVOTHYROXINE [Concomitant]
  4. LANTUS [Suspect]
     Dosage: 20UNIT PER DAY
     Route: 058
     Dates: start: 20100617
  5. FUROSEMIDE [Concomitant]
  6. JANUVIA [Suspect]
  7. SIMVASTATIN [Concomitant]
  8. ENALAPRIL MALEATE [Concomitant]
  9. NIASPAN [Concomitant]
  10. AVANDIA [Suspect]
     Dosage: 8MG TWICE PER DAY
     Route: 048
     Dates: start: 20020101
  11. AMLODIPINE [Concomitant]

REACTIONS (11)
  - INJECTION SITE HAEMATOMA [None]
  - PAIN IN EXTREMITY [None]
  - MUSCULAR WEAKNESS [None]
  - STRESS [None]
  - ARTHRALGIA [None]
  - MUSCLE SPASMS [None]
  - PARAESTHESIA [None]
  - URTICARIA [None]
  - JOINT SWELLING [None]
  - OEDEMA PERIPHERAL [None]
  - BLOOD GLUCOSE INCREASED [None]
